FAERS Safety Report 8556664-4 (Version None)
Quarter: 2012Q3

REPORT INFORMATION
  Report Type: 
  Country: None (occurrence: None)
  Receive Date: 20120726
  Receipt Date: 20120726
  Transmission Date: 20120928
  Serious: Yes (Other)
  Sender: FDA-Public Use
  Company Number: None

PATIENT
  Age: 42 Year
  Sex: Male
  Weight: 97.5234 kg

DRUGS (1)
  1. KETOCONAZOLE [Suspect]
     Indication: FUNGAL SKIN INFECTION
     Dosage: 2 TIME SIZE OF PEA, 1 PER DAY, TOP
     Route: 061
     Dates: start: 20120715, end: 20120722

REACTIONS (3)
  - URTICARIA [None]
  - RASH [None]
  - BURNING SENSATION [None]
